FAERS Safety Report 5323530-7 (Version None)
Quarter: 2007Q2

REPORT INFORMATION
  Report Type: 
  Country: None (occurrence: None)
  Receive Date: 20070508
  Receipt Date: 20070425
  Transmission Date: 20071010
  Serious: Yes (Other)
  Sender: FDA-Public Use
  Company Number: 2006-150051-NL

PATIENT
  Age: 45 Year
  Sex: Female
  Weight: 59 kg

DRUGS (4)
  1. NUVARING [Suspect]
     Indication: CONTRACEPTION
     Dosage: VAGINAL
     Route: 067
     Dates: start: 20061022, end: 20061025
  2. NUVARING [Suspect]
     Indication: CONTRACEPTION
     Dosage: VAGINAL
     Route: 067
     Dates: start: 20070422
  3. CHEWABLE VITAMIN [Concomitant]
  4. VITAMIN E [Concomitant]

REACTIONS (8)
  - ANXIETY [None]
  - APATHY [None]
  - DEPRESSION [None]
  - FLUID RETENTION [None]
  - LETHARGY [None]
  - MENORRHAGIA [None]
  - STRESS [None]
  - SUICIDAL IDEATION [None]
